FAERS Safety Report 5480299-3 (Version None)
Quarter: 2007Q3

REPORT INFORMATION
  Report Type: 
  Country: None (occurrence: None)
  Receive Date: 20070913
  Receipt Date: 20061025
  Transmission Date: 20080115
  Serious: Yes (Other)
  Sender: FDA-Public Use
  Company Number: PHEH2006US13117

PATIENT
  Age: 71 Year
  Sex: Female

DRUGS (3)
  1. DIOVAN [Suspect]
     Indication: HYPERTENSION
     Dosage: 320 MG, QD
     Dates: start: 20050101
  2. DIURETICS (NO INGREDIENTS/SUBSTANCES) [Concomitant]
  3. NORVASC [Concomitant]

REACTIONS (4)
  - FATIGUE [None]
  - FLUSHING [None]
  - HYPERTENSION [None]
  - JOINT SWELLING [None]
